FAERS Safety Report 23128792 (Version 3)
Quarter: 2023Q4

REPORT INFORMATION
  Report Type: Spontaneous
  Country: JP (occurrence: JP)
  Receive Date: 20231031
  Receipt Date: 20231213
  Transmission Date: 20240110
  Serious: Yes (Hospitalization, Other)
  Sender: FDA-Public Use
  Company Number: JP-TAIHOP-2023-008516

PATIENT
  Age: 75 Year
  Sex: Female
  Weight: 47 kg

DRUGS (8)
  1. LONSURF [Suspect]
     Active Substance: TIPIRACIL HYDROCHLORIDE\TRIFLURIDINE
     Indication: Gastric cancer
     Dosage: CURRENT CYCLE UNKNOWN.
     Route: 048
     Dates: start: 20230913, end: 20231023
  2. LONSURF [Suspect]
     Active Substance: TIPIRACIL HYDROCHLORIDE\TRIFLURIDINE
     Dosage: CURRENT CYCLE UNKNOWN.
     Route: 048
     Dates: start: 20231018, end: 20231022
  3. CYRAMZA [Suspect]
     Active Substance: RAMUCIRUMAB
     Indication: Gastric cancer
     Route: 042
     Dates: start: 20230913, end: 20230927
  4. TERAMURO AP [Concomitant]
     Indication: Hypertension
     Dosage: 1 TABLET
     Route: 048
     Dates: start: 20230705
  5. LASIX [Concomitant]
     Active Substance: FUROSEMIDE
     Indication: Oedema
     Route: 048
     Dates: start: 20230809, end: 20231101
  6. BIO-THREE [Concomitant]
     Active Substance: HERBALS
     Indication: Product used for unknown indication
     Dosage: 3TABLETS
     Dates: start: 202306
  7. AZULFIDINE [Concomitant]
     Active Substance: SULFASALAZINE
     Indication: Rheumatoid arthritis
     Route: 048
     Dates: start: 20230817
  8. METOCLOPRAMIDE [Concomitant]
     Active Substance: METOCLOPRAMIDE
     Indication: Nausea
     Route: 048
     Dates: start: 20230916, end: 20231003

REACTIONS (3)
  - Pneumonia [Recovering/Resolving]
  - Myelosuppression [Recovered/Resolved]
  - Decreased immune responsiveness [Unknown]

NARRATIVE: CASE EVENT DATE: 20230928
